FAERS Safety Report 9819046 (Version 1)
Quarter: 2014Q1

REPORT INFORMATION
  Report Type: Spontaneous
  Country: US (occurrence: US)
  Receive Date: 20140115
  Receipt Date: 20140115
  Transmission Date: 20141002
  Serious: Yes (Other)
  Sender: FDA-Public Use
  Company Number: US-PFIZER INC-2014009900

PATIENT
  Age: 50 Year
  Sex: Female
  Weight: 136 kg

DRUGS (2)
  1. CELEBREX [Suspect]
     Indication: RHEUMATOID ARTHRITIS
     Dosage: (DOSE EITHER 10MG OR 20MG), 1X/DAY
  2. CELEBREX [Suspect]
     Indication: OSTEOARTHRITIS

REACTIONS (5)
  - Diabetes mellitus [Unknown]
  - Arthropathy [Unknown]
  - Musculoskeletal disorder [Unknown]
  - Weight increased [Unknown]
  - Fibromyalgia [Unknown]
